FAERS Safety Report 22525672 (Version 1)
Quarter: 2023Q2

REPORT INFORMATION
  Report Type: Spontaneous
  Country: KR (occurrence: KR)
  Receive Date: 20230606
  Receipt Date: 20230606
  Transmission Date: 20230722
  Serious: Yes (Other)
  Sender: FDA-Public Use
  Company Number: KR-MYLANLABS-2023M1058512

PATIENT
  Age: 54 Year
  Sex: Male

DRUGS (5)
  1. CELEBREX [Suspect]
     Active Substance: CELECOXIB
     Indication: Foot fracture
     Dosage: 1 DOSAGE FORM, QD
     Route: 048
     Dates: start: 20190107, end: 20190110
  2. GABEXATE MESYLATE [Suspect]
     Active Substance: GABEXATE MESYLATE
     Indication: Foot fracture
     Dosage: 1 DOSAGE FORM, QD
     Route: 042
     Dates: start: 20190107, end: 20190110
  3. RAMOSETRON HYDROCHLORIDE [Suspect]
     Active Substance: RAMOSETRON HYDROCHLORIDE
     Indication: Foot fracture
     Dosage: 1 DOSAGE FORM, QD
     Route: 042
     Dates: start: 20190107, end: 20190110
  4. LANSOPRAZOLE [Suspect]
     Active Substance: LANSOPRAZOLE
     Indication: Foot fracture
     Dosage: 1 DOSAGE FORM, BID
     Route: 048
     Dates: start: 20190107, end: 20190110
  5. ACETAMINOPHEN\TRAMADOL HYDROCHLORIDE [Suspect]
     Active Substance: ACETAMINOPHEN\TRAMADOL HYDROCHLORIDE
     Indication: Foot fracture
     Dosage: 1 DOSAGE FORM, BID
     Route: 048
     Dates: start: 20190107, end: 20190110

REACTIONS (4)
  - Angioedema [Recovered/Resolved]
  - Urticaria [Recovered/Resolved]
  - Pruritus [Recovered/Resolved]
  - Off label use [Unknown]

NARRATIVE: CASE EVENT DATE: 20190107
